FAERS Safety Report 19098785 (Version 2)
Quarter: 2021Q4

REPORT INFORMATION
  Report Type: Spontaneous
  Country: IT (occurrence: IT)
  Receive Date: 20210406
  Receipt Date: 20211210
  Transmission Date: 20220304
  Serious: Yes (Death)
  Sender: FDA-Public Use
  Company Number: None

PATIENT
  Age: 67 Year
  Sex: Female

DRUGS (3)
  1. IRINOTECAN HYDROCHLORIDE [Suspect]
     Active Substance: IRINOTECAN HYDROCHLORIDE
     Indication: Pancreatic carcinoma
     Dosage: 120 MG, CYCLIC
     Route: 013
     Dates: start: 20210121, end: 20210310
  2. OXALIPLATIN [Suspect]
     Active Substance: OXALIPLATIN
     Indication: Pancreatic carcinoma
     Dosage: 68 MG, CYCLIC
     Route: 013
     Dates: start: 20210121, end: 20210310
  3. FLUOROURACIL [Suspect]
     Active Substance: FLUOROURACIL
     Indication: Pancreatic carcinoma
     Dosage: 1920 MG, CYCLIC
     Route: 013
     Dates: start: 20210121, end: 20210310

REACTIONS (9)
  - Pancreatitis necrotising [Fatal]
  - Splenic artery thrombosis [Fatal]
  - Pneumonia legionella [Fatal]
  - Pneumonia cytomegaloviral [Fatal]
  - COVID-19 pneumonia [Fatal]
  - Neoplasm progression [Fatal]
  - Acute respiratory failure [Fatal]
  - Off label use [Unknown]
  - Off label use [Unknown]

NARRATIVE: CASE EVENT DATE: 20210121
